FAERS Safety Report 24227371 (Version 2)
Quarter: 2024Q4

REPORT INFORMATION
  Report Type: Spontaneous
  Country: US (occurrence: US)
  Receive Date: 20240820
  Receipt Date: 20241004
  Transmission Date: 20250114
  Serious: No
  Sender: FRESENIUS MEDICAL CARE
  Company Number: US-FMCRTG-FMC-2407-000883

PATIENT
  Sex: Female

DRUGS (1)
  1. DELFLEX WITH DEXTROSE 1.5% LOW MAGNESIUM LOW CALCIUM [Suspect]
     Active Substance: CALCIUM CHLORIDE\DEXTROSE\MAGNESIUM CHLORIDE\SODIUM CHLORIDE\SODIUM LACTATE
     Indication: End stage renal disease
     Route: 033

REACTIONS (2)
  - Discomfort [Recovered/Resolved]
  - Influenza like illness [Unknown]
